FAERS Safety Report 8171617-6 (Version None)
Quarter: 2012Q1

REPORT INFORMATION
  Report Type: 
  Country: None (occurrence: None)
  Receive Date: 20120228
  Receipt Date: 20120221
  Transmission Date: 20120608
  Serious: Yes (Other)
  Sender: FDA-Public Use
  Company Number: GB-ABBOTT-12P-167-0907038-00

PATIENT
  Age: 14 Year
  Sex: Female

DRUGS (1)
  1. VALPROATE SODIUM [Suspect]
     Indication: EPILEPSY

REACTIONS (7)
  - INAPPROPRIATE ANTIDIURETIC HORMONE SECRETION [None]
  - URINE SODIUM DECREASED [None]
  - URINE OSMOLARITY DECREASED [None]
  - CONVULSION [None]
  - BLOOD OSMOLARITY DECREASED [None]
  - CONDITION AGGRAVATED [None]
  - HYPONATRAEMIA [None]
